FAERS Safety Report 11240523 (Version 2)
Quarter: 2015Q3

REPORT INFORMATION
  Report Type: Spontaneous
  Country: AL (occurrence: AL)
  Receive Date: 20150706
  Receipt Date: 20150724
  Transmission Date: 20151125
  Serious: Yes (Other)
  Sender: FDA-Public Use
  Company Number: PHHY2015AL079949

PATIENT
  Age: 48 Year
  Sex: Female

DRUGS (5)
  1. ZOMETA [Suspect]
     Active Substance: ZOLEDRONIC ACID
     Indication: METASTASES TO BONE
     Dosage: 04 MG, EVERY 28 DAYS
     Route: 042
  2. ARIMIDEX [Concomitant]
     Active Substance: ANASTROZOLE
     Indication: PRODUCT USED FOR UNKNOWN INDICATION
     Dosage: 1 MG, QD
     Route: 065
     Dates: start: 201209, end: 201305
  3. EVEROLIMUS [Suspect]
     Active Substance: EVEROLIMUS
     Indication: PRODUCT USED FOR UNKNOWN INDICATION
     Dosage: 10 MG, QD
     Route: 065
  4. XELODA [Concomitant]
     Active Substance: CAPECITABINE
     Indication: PRODUCT USED FOR UNKNOWN INDICATION
     Dosage: 3500 MG, QD
     Route: 065
     Dates: start: 201305
  5. EXEMESTANE. [Concomitant]
     Active Substance: EXEMESTANE
     Indication: PRODUCT USED FOR UNKNOWN INDICATION
     Route: 065

REACTIONS (9)
  - Metastases to bone [Unknown]
  - Blood creatine increased [Unknown]
  - Hypercalcaemia [Unknown]
  - Metastases to central nervous system [Recovering/Resolving]
  - Malignant neoplasm progression [Unknown]
  - Breast cancer metastatic [Unknown]
  - Arthralgia [Unknown]
  - Bone lesion [Unknown]
  - Azotaemia [Unknown]

NARRATIVE: CASE EVENT DATE: 20120903
